FAERS Safety Report 5311807-0 (Version None)
Quarter: 2007Q2

REPORT INFORMATION
  Report Type: 
  Country: None (occurrence: None)
  Receive Date: 20070430
  Receipt Date: 20070219
  Transmission Date: 20071010
  Serious: No
  Sender: FDA-Public Use
  Company Number: 2005UW02941

PATIENT
  Age: 64 Year
  Sex: Female
  Weight: 63.5 kg

DRUGS (6)
  1. NEXIUM [Suspect]
     Indication: CHEST PAIN
     Route: 048
  2. NEXIUM [Suspect]
     Route: 048
  3. NEXIUM [Suspect]
     Route: 048
  4. MIACALCIN [Concomitant]
  5. LISINOPRIL [Concomitant]
  6. VITAMINS [Concomitant]

REACTIONS (4)
  - CHEST PAIN [None]
  - DYSPEPSIA [None]
  - GINGIVAL DISORDER [None]
  - PHARYNGOLARYNGEAL PAIN [None]
